FAERS Safety Report 8792830 (Version 2)
Quarter: 2012Q4

REPORT INFORMATION
  Report Type: 
  Country: US (occurrence: US)
  Receive Date: 20120918
  Receipt Date: 20121024
  Transmission Date: 20130627
  Serious: Yes (Other)
  Sender: FDA-Public Use
  Company Number: US-PFIZER INC-2012228410

PATIENT
  Sex: Female

DRUGS (4)
  1. RELPAX [Suspect]
     Indication: MIGRAINE
     Dosage: 40 mg, as needed
     Dates: start: 2000
  2. PREMARIN VAGINAL CREAM [Suspect]
     Indication: VULVOVAGINAL DRYNESS
     Dosage: UNK, daily
     Route: 067
     Dates: end: 2011
  3. PROPRANOLOL [Concomitant]
     Dosage: 20 mg, 2x/day
  4. SIMVASTATIN [Concomitant]
     Indication: BLOOD CHOLESTEROL ABNORMAL
     Dosage: 80 mg, daily

REACTIONS (8)
  - Diabetes mellitus [Unknown]
  - Trigeminal neuralgia [Not Recovered/Not Resolved]
  - Ear infection [Unknown]
  - Dry eye [Unknown]
  - Genital rash [Unknown]
  - Pain [Unknown]
  - Headache [Unknown]
  - Abdominal discomfort [Unknown]
